FAERS Safety Report 6359568-0 (Version None)
Quarter: 2009Q3

REPORT INFORMATION
  Report Type: 
  Country: None (occurrence: None)
  Receive Date: 20090917
  Receipt Date: 20090915
  Transmission Date: 20100115
  Serious: Yes (Other)
  Sender: FDA-Public Use
  Company Number: US-JNJFOC-20090704860

PATIENT
  Sex: Female

DRUGS (2)
  1. ARESTIN [Suspect]
     Indication: DRUG USE FOR UNKNOWN INDICATION
     Route: 065
  2. UNKNOWN MEDICATION [Concomitant]
     Route: 065

REACTIONS (4)
  - EAR PAIN [None]
  - HERPES ZOSTER [None]
  - INFLUENZA LIKE ILLNESS [None]
  - URTICARIA [None]
